FAERS Safety Report 4796816-2 (Version None)
Quarter: 2005Q4

REPORT INFORMATION
  Report Type: 
  Country: None (occurrence: None)
  Receive Date: 20051011
  Receipt Date: 20051011
  Transmission Date: 20060501
  Serious: Yes (Congenital Anomaly)
  Sender: FDA-Public Use
  Company Number: None

PATIENT
  Age: 50 Year
  Sex: Female
  Weight: 90.7194 kg

DRUGS (1)
  1. VIOXX [Suspect]
     Indication: ANTIINFLAMMATORY THERAPY
     Dosage: 1 X DAILY PO
     Route: 048
     Dates: start: 19991001, end: 20000701

REACTIONS (3)
  - ACTIVITIES OF DAILY LIVING IMPAIRED [None]
  - EJECTION FRACTION DECREASED [None]
  - FATIGUE [None]
